FAERS Safety Report 7902585-7 (Version None)
Quarter: 2011Q4

REPORT INFORMATION
  Report Type: 
  Country: None (occurrence: None)
  Receive Date: 20111108
  Receipt Date: 20111024
  Transmission Date: 20120403
  Serious: Yes (Hospitalization)
  Sender: FDA-Public Use
  Company Number: US-WATSON-2011-18638

PATIENT
  Age: 42 Year
  Sex: Male

DRUGS (7)
  1. DESFLURANE [Suspect]
     Indication: ANAESTHESIA
  2. LIDOCAINE [Suspect]
     Indication: ANAESTHESIA
  3. ETOMIDATE [Suspect]
     Indication: ANAESTHESIA
  4. SUCCINYLCHOLINE CHLORIDE [Suspect]
     Indication: ANAESTHESIA
  5. KETOROLAC (WATSON LABORATORIES) [Suspect]
     Indication: ANAESTHESIA
  6. PROPOFOL [Suspect]
     Indication: ANAESTHESIA
     Dosage: 50MG, AND 100MG
     Route: 065
  7. FENTANYL-100 [Suspect]
     Indication: ANAESTHESIA
     Dosage: UNK
     Route: 065

REACTIONS (3)
  - ELECTROCARDIOGRAM ST SEGMENT ELEVATION [None]
  - HYPOXIA [None]
  - HYPOVENTILATION [None]
